FAERS Safety Report 6276127-9 (Version None)
Quarter: 2009Q3

REPORT INFORMATION
  Report Type: 
  Country: None (occurrence: None)
  Receive Date: 20090717
  Receipt Date: 20090717
  Transmission Date: 20100115
  Serious: Yes (Other)
  Sender: FDA-Public Use
  Company Number: None

PATIENT
  Age: 45 Year
  Sex: Female
  Weight: 47.6277 kg

DRUGS (1)
  1. TAMIFLU [Suspect]
     Indication: INFLUENZA
     Dosage: 75 MG 2X DAY FOR 5 DAYS
     Dates: start: 20090626, end: 20090701

REACTIONS (6)
  - CONFUSIONAL STATE [None]
  - LOSS OF CONSCIOUSNESS [None]
  - MENTAL IMPAIRMENT [None]
  - SENSATION OF PRESSURE [None]
  - SINUS HEADACHE [None]
  - VERTIGO [None]
